FAERS Safety Report 7500231-8 (Version None)
Quarter: 2011Q2

REPORT INFORMATION
  Report Type: 
  Country: None (occurrence: None)
  Receive Date: 20110524
  Receipt Date: 20110519
  Transmission Date: 20111010
  Serious: Yes (Life-Threatening, Other)
  Sender: FDA-Public Use
  Company Number: US-ASTRAZENECA-2011SE27024

PATIENT
  Age: 45 Year
  Sex: Male

DRUGS (1)
  1. SEROQUEL XR [Suspect]
     Route: 048

REACTIONS (5)
  - DYSLEXIA [None]
  - TERMINAL STATE [None]
  - BLOOD DISORDER [None]
  - MALAISE [None]
  - MYELODYSPLASTIC SYNDROME [None]
